FAERS Safety Report 6176191-1 (Version None)
Quarter: 2009Q2

REPORT INFORMATION
  Report Type: 
  Country: None (occurrence: None)
  Receive Date: 20090501
  Receipt Date: 20080528
  Transmission Date: 20091009
  Serious: Yes (Hospitalization, Other)
  Sender: FDA-Public Use
  Company Number: DE-ALEXION-A200800090

PATIENT

DRUGS (6)
  1. SOLIRIS [Suspect]
     Indication: PAROXYSMAL NOCTURNAL HAEMOGLOBINURIA
     Dosage: 600 MG, SINGLE
     Route: 042
     Dates: start: 20071227, end: 20071227
  2. SOLIRIS [Suspect]
     Dosage: 900 MG, SINGLE
     Route: 042
     Dates: start: 20080401, end: 20080401
  3. METAMIZOL /00039502/ [Suspect]
     Indication: PAIN
     Dosage: 1000 MG, UNK
     Route: 048
     Dates: start: 20070301
  4. IMPLANON [Concomitant]
     Indication: CONTRACEPTION
     Dosage: 68 MG, UNK
     Dates: start: 20070301
  5. WARFARIN [Concomitant]
     Indication: THROMBOSIS
     Dosage: 3 MG, UNK
     Route: 048
     Dates: start: 20070301
  6. TILIDIN [Concomitant]
     Indication: PAIN
     Dosage: 150 MG, UNK
     Route: 048
     Dates: start: 20070301

REACTIONS (2)
  - AGRANULOCYTOSIS [None]
  - STAPHYLOCOCCAL ABSCESS [None]
